FAERS Safety Report 9748914 (Version 2)
Quarter: 2013Q4

REPORT INFORMATION
  Report Type: Spontaneous
  Country: US (occurrence: US)
  Receive Date: 20131212
  Receipt Date: 20131212
  Transmission Date: 20140711
  Serious: No
  Sender: FDA-Public Use
  Company Number: US-INCYTE CORPORATION-2013IN000590

PATIENT
  Sex: Female
  Weight: 63.49 kg

DRUGS (2)
  1. JAKAFI [Suspect]
     Indication: MYELOFIBROSIS
     Dosage: 10 MG, QD
     Route: 048
     Dates: start: 20120809
  2. ASA [Concomitant]
     Dosage: 325 MG, UNK

REACTIONS (5)
  - Palpitations [Unknown]
  - Muscle spasms [Unknown]
  - Thrombocytosis [Unknown]
  - Pain [Unknown]
  - Haematoma [Unknown]
